FAERS Safety Report 10234415 (Version 1)
Quarter: 2014Q2

REPORT INFORMATION
  Report Type: Spontaneous
  Country: FR (occurrence: FR)
  Receive Date: 20140612
  Receipt Date: 20140612
  Transmission Date: 20141212
  Serious: Yes (Life-Threatening)
  Sender: FDA-Public Use
  Company Number: FR-BRISTOL-MYERS SQUIBB COMPANY-20989257

PATIENT
  Age: 84 Year
  Sex: Male

DRUGS (8)
  1. METFORMIN HCL [Suspect]
     Indication: DIABETES MELLITUS
     Route: 048
     Dates: end: 20140507
  2. SOTALOL [Suspect]
     Indication: ATRIAL FIBRILLATION
     Route: 048
     Dates: start: 200712, end: 20140507
  3. PREVISCAN [Suspect]
     Route: 048
     Dates: start: 200707, end: 20140507
  4. PERINDOPRIL [Suspect]
     Route: 048
     Dates: end: 20140507
  5. FUROSEMIDE [Suspect]
     Route: 048
     Dates: end: 20140507
  6. INDAPAMIDE [Suspect]
     Route: 048
     Dates: start: 200712, end: 20140507
  7. INEXIUM [Concomitant]
     Dosage: GASTRORESISTANT TABLET
  8. ATORVASTATIN [Concomitant]
     Route: 048

REACTIONS (4)
  - Lactic acidosis [Recovered/Resolved]
  - Renal failure acute [Recovering/Resolving]
  - Bradycardia [Recovered/Resolved]
  - International normalised ratio increased [Recovered/Resolved]
